FAERS Safety Report 15483685 (Version 5)
Quarter: 2020Q4

REPORT INFORMATION
  Report Type: Spontaneous
  Country: US (occurrence: US)
  Receive Date: 20181010
  Receipt Date: 20201019
  Transmission Date: 20210113
  Serious: No
  Sender: FDA-Public Use
  Company Number: US-PFIZER INC-2018406945

PATIENT
  Age: 60 Year
  Sex: Male
  Weight: 102.06 kg

DRUGS (10)
  1. LYRICA [Suspect]
     Active Substance: PREGABALIN
     Indication: NEUROPATHY PERIPHERAL
     Dosage: 75 MG, 3X/DAY
     Route: 048
  2. METHIMAZOLE. [Concomitant]
     Active Substance: METHIMAZOLE
     Indication: THYROID DISORDER
     Dosage: 5 MG, 1X/DAY (5 MG BY MOUTH ONCE PER DAY)
     Route: 048
     Dates: start: 201911, end: 20200303
  3. TOPAMATE [Concomitant]
     Active Substance: TOPIRAMATE
     Indication: MIGRAINE
     Dosage: 50 MG, 2X/DAY (50 MG BY MOUTH TWICE PER DAY)
     Route: 048
     Dates: start: 2016
  4. TERAZOSIN [Concomitant]
     Active Substance: TERAZOSIN HYDROCHLORIDE
     Indication: PROSTATIC DISORDER
     Dosage: 1 MG, 2X/DAY (1 MG BY MOUTH TWICE PER DAY)
     Route: 048
     Dates: start: 2012
  5. CARVEDILOL. [Concomitant]
     Active Substance: CARVEDILOL
     Indication: HYPERTENSION
     Dosage: 6.25 MG, 2X/DAY (6.25 MG BY MOUTH TWICE PER DAY)
     Route: 048
  6. PANTOPRAZOLE [Concomitant]
     Active Substance: PANTOPRAZOLE
     Indication: GASTROOESOPHAGEAL REFLUX DISEASE
     Dosage: 40 MG, DAILY (40 MG BY MOUTH EACH DAY)
     Route: 048
     Dates: start: 201910
  7. TROSPIUM CHLORIDE. [Concomitant]
     Active Substance: TROSPIUM CHLORIDE
     Indication: PROSTATIC DISORDER
     Dosage: 20 MG, 2X/DAY (20 MG BY MOUTH TWICE PER DAY)
     Route: 048
     Dates: start: 2017
  8. HYDROCHLOROTHIAZIDE. [Concomitant]
     Active Substance: HYDROCHLOROTHIAZIDE
     Indication: HYPERTENSION
     Dosage: 12.56 MG, DAILY (12.5 MG BY MOUTH EACH DAY)
     Route: 048
     Dates: end: 20200302
  9. ROSUVASTATIN. [Concomitant]
     Active Substance: ROSUVASTATIN
     Indication: BLOOD CHOLESTEROL INCREASED
     Dosage: 20 MG, DAILY (20 MG BY MOUTH EACH DAY)
     Route: 048
     Dates: start: 201912, end: 20200302
  10. TADALAFIL. [Concomitant]
     Active Substance: TADALAFIL
     Indication: PROSTATIC DISORDER
     Dosage: 5 MEQ, 1X/DAY (5 MEQ BY MOUTH ONCE PER DAY)
     Route: 048
     Dates: start: 201906

REACTIONS (2)
  - Illness [Unknown]
  - Neuralgia [Unknown]
